FAERS Safety Report 10261050 (Version 1)
Quarter: 2014Q2

REPORT INFORMATION
  Report Type: Spontaneous
  Country: DE (occurrence: DE)
  Receive Date: 20140626
  Receipt Date: 20140626
  Transmission Date: 20141212
  Serious: Yes (Other)
  Sender: FDA-Public Use
  Company Number: DE-DRREDDYS-GER/GER/14/0041303

PATIENT
  Age: 36 Year
  Sex: Female
  Weight: 133 kg

DRUGS (4)
  1. RAMIPRIL [Suspect]
     Indication: HYPERTENSION
     Route: 048
  2. HYDROCHLOROTHIAZIDE [Suspect]
     Indication: HYPERTENSION
     Route: 048
  3. VALDOXAN [Suspect]
     Indication: ANXIETY DISORDER
     Route: 048
     Dates: start: 20130522, end: 20140123
  4. CELESTAN [Concomitant]
     Indication: MATERNAL THERAPY TO ENHANCE FOETAL LUNG MATURITY
     Route: 030
     Dates: start: 20140114, end: 20140114

REACTIONS (3)
  - Gestational diabetes [Unknown]
  - Caesarean section [Unknown]
  - Exposure during pregnancy [Unknown]
